FAERS Safety Report 7111125-4 (Version None)
Quarter: 2010Q4

REPORT INFORMATION
  Report Type: 
  Country: None (occurrence: None)
  Receive Date: 20101118
  Receipt Date: 20091030
  Transmission Date: 20110411
  Serious: No
  Sender: FDA-Public Use
  Company Number: US-TEVA-213807USA

PATIENT
  Sex: Female
  Weight: 63.56 kg

DRUGS (5)
  1. ALBUTEROL SULFATE AUTOHALER [Suspect]
     Indication: BRONCHITIS
     Route: 055
     Dates: start: 20091027, end: 20091027
  2. ALBUTEROL SULFATE AUTOHALER [Suspect]
     Indication: COUGH
  3. METHYLPREDNISOLONE [Concomitant]
  4. CEPHALEXIN [Concomitant]
  5. COUGH SYRUP [Concomitant]

REACTIONS (2)
  - DYSPHONIA [None]
  - LARYNGITIS [None]
